FAERS Safety Report 10641253 (Version 1)
Quarter: 2014Q4

REPORT INFORMATION
  Report Type: Spontaneous
  Country: FR (occurrence: FR)
  Receive Date: 20141209
  Receipt Date: 20141209
  Transmission Date: 20150529
  Serious: Yes (Hospitalization)
  Sender: FDA-Public Use
  Company Number: FR-PFIZER INC-2014333314

PATIENT
  Age: 76 Year
  Sex: Male

DRUGS (10)
  1. SEROPRAM [Suspect]
     Active Substance: CITALOPRAM HYDROBROMIDE
     Dosage: 30 MG, DAILY
     Route: 048
     Dates: start: 20140716, end: 20140810
  2. ALDACTONE [Suspect]
     Active Substance: SPIRONOLACTONE
     Dosage: 50 MG, 1X/DAY
     Route: 048
  3. INNOHEP [Suspect]
     Active Substance: TINZAPARIN SODIUM
     Dosage: 0.8 ML, 1X/DAY
     Route: 058
  4. ALLOPURINOL ZENTIVA [Concomitant]
     Dosage: 100 MG, 1X/DAY
     Route: 048
  5. HEMIGOXINE NATIVELLE [Concomitant]
     Active Substance: DIGOXIN
     Dosage: 0.125 MG, ALTERNATE DAY
     Route: 048
  6. CALTRATE 600+D [Concomitant]
     Dosage: 1 DF, 2X/DAY
     Route: 048
  7. TAREG [Suspect]
     Active Substance: VALSARTAN
     Dosage: 160 MG, 1X/DAY
     Route: 048
     Dates: end: 20140807
  8. LASILIX [Suspect]
     Active Substance: FUROSEMIDE
     Dosage: 125 MG, 1X/DAY
     Route: 048
  9. TAHOR [Concomitant]
     Active Substance: ATORVASTATIN CALCIUM
     Dosage: 40 MG, 1X/DAY
     Route: 048
  10. TEMERIT [Concomitant]
     Active Substance: NEBIVOLOL
     Dosage: 5 MG, 1X/DAY
     Route: 048

REACTIONS (5)
  - Malaise [Unknown]
  - Hyperkalaemia [Unknown]
  - Renal failure [Unknown]
  - Hyponatraemia [Unknown]
  - Hypotension [Unknown]

NARRATIVE: CASE EVENT DATE: 20140807
